FAERS Safety Report 7613005-4 (Version None)
Quarter: 2011Q3

REPORT INFORMATION
  Report Type: 
  Country: None (occurrence: None)
  Receive Date: 20110708
  Receipt Date: 20110628
  Transmission Date: 20111222
  Serious: Yes (Death)
  Sender: FDA-Public Use
  Company Number: FK201101312

PATIENT
  Age: 64 Year
  Sex: Female

DRUGS (7)
  1. VINORELBINE [Suspect]
     Indication: LUNG ADENOCARCINOMA
     Dosage: 102 MG, /BODY
  2. GEMCITABINE [Suspect]
     Indication: LUNG ADENOCARCINOMA
     Dosage: 18970 MG, /BODY
  3. CARBOPLATIN [Suspect]
     Indication: LUNG ADENOCARCINOMA
     Dosage: 2400 MG, /BODY
  4. GEFITINIB (GEFITINIB) (GEFITINIB) [Suspect]
     Indication: LUNG ADENOCARCINOMA
     Dosage: 3250 MG, /BODY
  5. PACLITAXEL [Suspect]
     Indication: LUNG ADENOCARCINOMA
     Dosage: 920 MG, /BODY
  6. DOCETAXEL [Suspect]
     Indication: LUNG ADENOCARCINOMA
     Dosage: 556 MG, /BODY
  7. CISPLATIN [Suspect]
     Indication: LUNG ADENOCARCINOMA
     Dosage: 324 MG, /BODY

REACTIONS (4)
  - LUNG ADENOCARCINOMA [None]
  - NEOPLASM PROGRESSION [None]
  - ACUTE MYELOID LEUKAEMIA [None]
  - PNEUMONITIS [None]
